FAERS Safety Report 6908360-4 (Version None)
Quarter: 2010Q3

REPORT INFORMATION
  Report Type: 
  Country: None (occurrence: None)
  Receive Date: 20100805
  Receipt Date: 20100802
  Transmission Date: 20110219
  Serious: Yes (Hospitalization)
  Sender: FDA-Public Use
  Company Number: NL-ALLERGAN-1003618US

PATIENT
  Age: 24 Year
  Sex: Female

DRUGS (1)
  1. BOTOX [Suspect]
     Indication: SALIVARY HYPERSECRETION
     Dosage: 110 UNITS, SINGLE
     Dates: start: 20091224, end: 20091224

REACTIONS (1)
  - DYSPHAGIA [None]
